FAERS Safety Report 4542384-X (Version None)
Quarter: 2004Q4

REPORT INFORMATION
  Report Type: 
  Country: None (occurrence: None)
  Receive Date: 20041229
  Receipt Date: 20041217
  Transmission Date: 20050328
  Serious: Yes (Death)
  Sender: FDA-Public Use
  Company Number: 2004S1003740

PATIENT
  Age: 40 Year
  Sex: Male

DRUGS (4)
  1. CLOZAPINE [Suspect]
     Indication: SCHIZOAFFECTIVE DISORDER
     Dosage: 400MG QD, ORAL
     Route: 048
  2. CLONAZEPAM [Concomitant]
  3. TEMAZEPAM [Concomitant]
  4. OXCARBABAZPINE [Concomitant]

REACTIONS (2)
  - HAEMORRHAGE [None]
  - VOMITING [None]
